FAERS Safety Report 6841762-3 (Version None)
Quarter: 2010Q3

REPORT INFORMATION
  Report Type: 
  Country: None (occurrence: None)
  Receive Date: 20100709
  Receipt Date: 20100610
  Transmission Date: 20110219
  Serious: Yes (Hospitalization)
  Sender: FDA-Public Use
  Company Number: FR-GUERBET-20100122

PATIENT
  Age: 72 Year
  Sex: Female

DRUGS (15)
  1. HEXABRIX [Suspect]
     Indication: FISTULOGRAM
     Dosage: 100 ML MILLILITRE(S), 1, 1, TOTAL, INTRAVENOUS
     Route: 042
     Dates: start: 20100415, end: 20100415
  2. ATORVASTATIN CALCIUM [Concomitant]
  3. FUROSEMIDE [Concomitant]
  4. LEVOTHYROX / LEVOTHYROXINE [Concomitant]
  5. MIMPARA / CINACALCET [Concomitant]
  6. FOSRENOL / LANTHENE [Concomitant]
  7. KAYEXALATE / POLYSTYRENE SODIUM [Concomitant]
  8. OROCAL / CALCIUM CARBONATE [Concomitant]
  9. FOLIC ACID [Concomitant]
  10. DEDROGYL / CALCIFEDIOL [Concomitant]
  11. VENOFER / IRON [Concomitant]
  12. KARDEGIC / LYSINE ACETYLSALICYLATE [Concomitant]
  13. PANTOPRAZOLE SODIUM [Concomitant]
  14. FORLAX / MACROGOL 4000 [Concomitant]
  15. VITARUTINE / NICOTINAMIDE [Concomitant]

REACTIONS (13)
  - ANAEMIA [None]
  - CHEILITIS [None]
  - DRY EYE [None]
  - ERYTHEMA MULTIFORME [None]
  - HYPERSENSITIVITY [None]
  - LIP PAIN [None]
  - LYMPHOPENIA [None]
  - MOUTH ULCERATION [None]
  - MUCOSAL EROSION [None]
  - MUCOSAL INFLAMMATION [None]
  - PROCTALGIA [None]
  - RENAL FAILURE CHRONIC [None]
  - SKIN LESION [None]
